FAERS Safety Report 5770686-8 (Version None)
Quarter: 2008Q2

REPORT INFORMATION
  Report Type: 
  Country: None (occurrence: None)
  Receive Date: 20080613
  Receipt Date: 20080509
  Transmission Date: 20081010
  Serious: No
  Sender: FDA-Public Use
  Company Number: US-ABBOTT-08P-163-0451338-00

PATIENT
  Sex: Male

DRUGS (6)
  1. HUMIRA [Suspect]
     Dosage: LOADING DOSE
     Route: 058
     Dates: start: 20080403, end: 20080403
  2. HUMIRA [Suspect]
     Route: 058
     Dates: start: 20080417, end: 20080417
  3. HUMIRA [Suspect]
     Route: 058
     Dates: start: 20080501, end: 20080501
  4. HUMIRA [Suspect]
     Route: 058
     Dates: start: 20080509, end: 20080509
  5. HUMIRA [Suspect]
  6. PREDNISONE TAB [Concomitant]
     Indication: CROHN'S DISEASE
     Dosage: TAPERED DOSES FROM 40 MG TO10MG DAILY

REACTIONS (5)
  - ABDOMINAL DISTENSION [None]
  - ABDOMINAL PAIN [None]
  - CROHN'S DISEASE [None]
  - DRUG INEFFECTIVE [None]
  - FLATULENCE [None]
